FAERS Safety Report 12573757 (Version 12)
Quarter: 2020Q3

REPORT INFORMATION
  Report Type: Spontaneous
  Country: US (occurrence: US)
  Receive Date: 20160720
  Receipt Date: 20200728
  Transmission Date: 20201102
  Serious: Yes (Hospitalization, Other)
  Sender: FDA-Public Use
  Company Number: US-PFIZER INC-2016350525

PATIENT
  Age: 73 Year
  Sex: Female
  Weight: 64 kg

DRUGS (5)
  1. XELJANZ [Suspect]
     Active Substance: TOFACITINIB CITRATE
     Dosage: 5 MG, 2X/DAY
     Route: 048
  2. ADVAIR HFA [Concomitant]
     Active Substance: FLUTICASONE PROPIONATE\SALMETEROL XINAFOATE
     Indication: ASTHMA
     Dosage: UNK
  3. XELJANZ [Suspect]
     Active Substance: TOFACITINIB CITRATE
     Indication: RHEUMATOID ARTHRITIS
     Dosage: 5 MG, 2X/DAY
     Route: 048
     Dates: start: 20160526
  4. XELJANZ [Suspect]
     Active Substance: TOFACITINIB CITRATE
     Dosage: 5 MG, 2X/DAY
     Route: 048
     Dates: end: 201712
  5. PREDNISONE. [Concomitant]
     Active Substance: PREDNISONE
     Dosage: UNK

REACTIONS (13)
  - Intervertebral disc protrusion [Unknown]
  - Fatigue [Recovered/Resolved]
  - Insomnia [Unknown]
  - Balance disorder [Unknown]
  - Osteoarthritis [Unknown]
  - Fall [Unknown]
  - Hypersensitivity [Unknown]
  - Decreased immune responsiveness [Unknown]
  - Mental impairment [Unknown]
  - Asthenia [Recovered/Resolved]
  - Gait disturbance [Recovered/Resolved]
  - Dysphonia [Unknown]
  - Compression fracture [Recovered/Resolved]

NARRATIVE: CASE EVENT DATE: 201607
